FAERS Safety Report 10650891 (Version 3)
Quarter: 2015Q1

REPORT INFORMATION
  Report Type: Spontaneous
  Country: US (occurrence: US)
  Receive Date: 20141215
  Receipt Date: 20150112
  Transmission Date: 20150720
  Serious: Yes (Disabling, Other)
  Sender: FDA-Public Use
  Company Number: US-AUROBINDO-AUR-APL-2014-12905

PATIENT
  Age: 71 Year
  Sex: Female
  Weight: 73.47 kg

DRUGS (1)
  1. GABAPENTIN CAPSULES 300 MG [Suspect]
     Active Substance: GABAPENTIN
     Indication: PRODUCT USED FOR UNKNOWN INDICATION
     Dosage: UNK UNK, ONCE A DAY
     Route: 048
     Dates: start: 201410, end: 201411

REACTIONS (5)
  - Abdominal pain upper [Unknown]
  - Abasia [Unknown]
  - Abdominal discomfort [Unknown]
  - Feeding disorder [Unknown]
  - Feeling abnormal [Unknown]

NARRATIVE: CASE EVENT DATE: 201410
